FAERS Safety Report 20169583 (Version 1)
Quarter: 2021Q4

REPORT INFORMATION
  Report Type: Report from Study
  Country: DE (occurrence: DE)
  Receive Date: 20211210
  Receipt Date: 20211210
  Transmission Date: 20220303
  Serious: Yes (Death, Hospitalization)
  Sender: FDA-Public Use
  Company Number: DE-ELI_LILLY_AND_COMPANY-DE202011002349

PATIENT
  Sex: Male

DRUGS (8)
  1. OLUMIANT [Suspect]
     Active Substance: BARICITINIB
     Indication: Rheumatoid arthritis
     Dosage: 2 MG, DAILY
     Route: 048
  2. VITAMIN D NOS [Concomitant]
     Active Substance: VITAMIN D NOS
     Indication: Product used for unknown indication
     Dosage: 1000 INTERNATIONAL UNIT, DAILY
     Route: 065
  3. SIMVASTATIN [Concomitant]
     Active Substance: SIMVASTATIN
     Indication: Product used for unknown indication
     Dosage: 40 MG, DAILY
     Route: 065
     Dates: start: 201410
  4. VALSARTAN [Concomitant]
     Active Substance: VALSARTAN
     Indication: Product used for unknown indication
     Dosage: 160 MG, DAILY
     Route: 065
     Dates: start: 201512
  5. ASPIRIN [Concomitant]
     Active Substance: ASPIRIN
     Indication: Product used for unknown indication
     Dosage: 100 MG, DAILY
     Route: 048
     Dates: start: 2011
  6. TORSEMIDE [Concomitant]
     Active Substance: TORSEMIDE
     Indication: Product used for unknown indication
     Dosage: 10 MG, DAILY
     Route: 065
     Dates: start: 201512
  7. ATORVASTATIN [Concomitant]
     Active Substance: ATORVASTATIN
     Indication: Product used for unknown indication
     Dosage: UNK, DAILY
     Route: 065
     Dates: start: 201512
  8. ALLOPURINOL [Concomitant]
     Active Substance: ALLOPURINOL
     Indication: Product used for unknown indication
     Dosage: 300 MG, DAILY
     Route: 065
     Dates: start: 201504

REACTIONS (4)
  - Staphylococcal sepsis [Fatal]
  - Atrial fibrillation [Not Recovered/Not Resolved]
  - Fall [Not Recovered/Not Resolved]
  - Infection [Not Recovered/Not Resolved]

NARRATIVE: CASE EVENT DATE: 20201015
